FAERS Safety Report 20104774 (Version 2)
Quarter: 2022Q1

REPORT INFORMATION
  Report Type: Report from Study
  Country: US (occurrence: US)
  Receive Date: 20211124
  Receipt Date: 20220107
  Transmission Date: 20220423
  Serious: Yes (Other)
  Sender: FDA-Public Use
  Company Number: US-BEH-2021138392

PATIENT
  Age: 8 Year
  Sex: Female
  Weight: 12.2 kg

DRUGS (1)
  1. PRIVIGEN [Suspect]
     Active Substance: HUMAN IMMUNOGLOBULIN G
     Indication: Primary immunodeficiency syndrome
     Route: 065

REACTIONS (5)
  - Clostridium difficile infection [Unknown]
  - No adverse event [Unknown]
  - Therapy interrupted [Unknown]
  - No adverse event [Unknown]
  - Therapy interrupted [Unknown]
